FAERS Safety Report 20748010 (Version 7)
Quarter: 2023Q1

REPORT INFORMATION
  Report Type: Report from Study
  Country: AU (occurrence: AU)
  Receive Date: 20220425
  Receipt Date: 20230228
  Transmission Date: 20230418
  Serious: Yes (Other)
  Sender: FDA-Public Use
  Company Number: AU-AMGEN-AUSCT2022070647

PATIENT
  Age: 12 Year
  Sex: Male

DRUGS (65)
  1. CARFILZOMIB [Suspect]
     Active Substance: CARFILZOMIB
     Indication: Acute lymphocytic leukaemia
     Dosage: 104 MILLIGRAM
     Route: 042
     Dates: start: 20220405
  2. ASPARAGINASE [Suspect]
     Active Substance: ASPARAGINASE
     Indication: Acute lymphocytic leukaemia
     Dosage: 9200 UNK
     Route: 065
     Dates: start: 20220408
  3. DEXAMETHASONE [Concomitant]
     Active Substance: DEXAMETHASONE
     Indication: Acute lymphocytic leukaemia
     Dosage: 1.52 - 5.56 MILLIGRAM
     Dates: start: 20220405
  4. VINCRISTINE [Concomitant]
     Active Substance: VINCRISTINE
     Indication: Acute lymphocytic leukaemia
     Dosage: 2 MILLIGRAM
     Dates: start: 20220405
  5. DAUNORUBICIN [Concomitant]
     Active Substance: DAUNORUBICIN
     Indication: Acute lymphocytic leukaemia
     Dosage: 112 MILLIGRAM
     Dates: start: 20220407
  6. METHOTREXATE [Concomitant]
     Active Substance: METHOTREXATE
     Dosage: 15 MILLIGRAM
     Route: 037
     Dates: start: 20220404
  7. CYTARABINE [Concomitant]
     Active Substance: CYTARABINE
     Dosage: 30 MILLIGRAM
     Route: 037
     Dates: start: 20220404
  8. OMEPRAZOLE [Concomitant]
     Active Substance: OMEPRAZOLE
     Dosage: 20 MILLIGRAM
     Route: 048
     Dates: start: 20220414, end: 20220414
  9. AMIKACIN [Concomitant]
     Active Substance: AMIKACIN
     Dosage: 1350 MILLIGRAM
     Route: 042
     Dates: start: 20220412, end: 20220423
  10. CETIRIZINE [Concomitant]
     Active Substance: CETIRIZINE HYDROCHLORIDE
     Dosage: 10 MILLIGRAM
     Route: 048
     Dates: start: 20220408, end: 20220419
  11. HYDROCORTISONE [Concomitant]
     Active Substance: HYDROCORTISONE
     Dosage: 15-78 MILLIGRAM
     Dates: start: 20220404, end: 20220419
  12. CLONIDINE [Concomitant]
     Active Substance: CLONIDINE
     Dosage: 50 MICROGRAM
     Route: 048
     Dates: start: 20220410, end: 20220424
  13. NOVORAPID [Concomitant]
     Active Substance: INSULIN ASPART
     Dosage: 25 UNK
     Route: 058
     Dates: start: 20220409, end: 20220411
  14. DEXTROSE\SODIUM CHLORIDE [Concomitant]
     Active Substance: DEXTROSE\SODIUM CHLORIDE
     Dosage: 231.25 UNK
     Route: 042
     Dates: start: 20220405, end: 20220407
  15. FENTANYL [Concomitant]
     Active Substance: FENTANYL
     Dosage: 2 UNK
     Route: 042
     Dates: start: 20220221, end: 20220423
  16. ACETAMINOPHEN [Concomitant]
     Active Substance: ACETAMINOPHEN
     Dosage: 1 GRAM
     Route: 042
     Dates: start: 20220301, end: 20220424
  17. PALONOSETRON [Concomitant]
     Active Substance: PALONOSETRON
     Dosage: 250 MICROGRAM
     Route: 042
     Dates: start: 20220307, end: 20220422
  18. BUTYLSCOPOLAMINE BROMIDE [Concomitant]
     Active Substance: BUTYLSCOPOLAMINE BROMIDE
     Dosage: 20 MILLIGRAM
     Route: 042
     Dates: start: 20220317, end: 20220420
  19. LEVOMEPROMAZINE [Concomitant]
     Active Substance: LEVOMEPROMAZINE
     Dosage: 1 MILLIGRAM
     Route: 042
     Dates: start: 20220327, end: 20220404
  20. SODIUM BICARBONATE [Concomitant]
     Active Substance: SODIUM BICARBONATE
     Dosage: UNK
  21. WHOLE BLOOD [Concomitant]
     Active Substance: WHOLE BLOOD
     Dosage: UNK
  22. CALCIUM [Concomitant]
     Active Substance: CALCIUM
     Dosage: UNK
  23. CHLORIDE ION [Concomitant]
     Active Substance: CHLORIDE ION
     Dosage: UNK
  24. FLEXURE [Concomitant]
     Dosage: 20 UNK
  25. HYDROMORPHONE [Concomitant]
     Active Substance: HYDROMORPHONE
  26. HYDROMORPHONE [Concomitant]
     Active Substance: HYDROMORPHONE
  27. HYDROMORPHONE [Concomitant]
     Active Substance: HYDROMORPHONE
  28. HYDROMORPHONE [Concomitant]
     Active Substance: HYDROMORPHONE
  29. MAGNESIUM [Concomitant]
     Active Substance: MAGNESIUM
  30. MAGNESIUM [Concomitant]
     Active Substance: MAGNESIUM
  31. MAGNESIUM [Concomitant]
     Active Substance: MAGNESIUM
  32. MAGNESIUM [Concomitant]
     Active Substance: MAGNESIUM
  33. PLATELETS [Concomitant]
     Active Substance: HUMAN PLATELET, ALLOGENIC
  34. PLATELETS [Concomitant]
     Active Substance: HUMAN PLATELET, ALLOGENIC
  35. PLATELETS [Concomitant]
     Active Substance: HUMAN PLATELET, ALLOGENIC
  36. PLATELETS [Concomitant]
     Active Substance: HUMAN PLATELET, ALLOGENIC
  37. POTASSIUM [Concomitant]
     Active Substance: POTASSIUM
  38. POTASSIUM [Concomitant]
     Active Substance: POTASSIUM
  39. POTASSIUM [Concomitant]
     Active Substance: POTASSIUM
  40. POTASSIUM [Concomitant]
     Active Substance: POTASSIUM
  41. SODIUM [Concomitant]
     Active Substance: SODIUM
  42. SODIUM [Concomitant]
     Active Substance: SODIUM
  43. SODIUM [Concomitant]
     Active Substance: SODIUM
  44. SODIUM [Concomitant]
     Active Substance: SODIUM
  45. ASPARAGINASE [Concomitant]
     Active Substance: ASPARAGINASE
     Dates: start: 20220408, end: 20220419
  46. VORICONAZOLE [Concomitant]
     Active Substance: VORICONAZOLE
     Dosage: 450 MILLIGRAM
     Route: 042
     Dates: start: 20220330, end: 20220331
  47. AMOXICILLIN [Concomitant]
     Active Substance: AMOXICILLIN
     Dosage: 250 MILLIGRAM
     Route: 042
     Dates: start: 20220330, end: 20220411
  48. MICAFUNGIN [Concomitant]
     Active Substance: MICAFUNGIN
     Dosage: 50 MILLIGRAM
     Route: 042
     Dates: start: 20220331, end: 20220423
  49. FOSAPREPITANT [Concomitant]
     Active Substance: FOSAPREPITANT
     Dosage: 150 MILLIGRAM
     Route: 042
     Dates: start: 20220401, end: 20220401
  50. ALTEPLASE [Concomitant]
     Active Substance: ALTEPLASE
     Dosage: 1.5 MILLIGRAM
     Route: 050
     Dates: start: 20220403, end: 20220418
  51. REMIFENTANIL [Concomitant]
     Active Substance: REMIFENTANIL
     Dosage: 0.1 UNK
     Route: 042
     Dates: start: 20220404, end: 20220419
  52. PROPOFOL [Concomitant]
     Active Substance: PROPOFOL
     Dosage: 20 UNK-3 UNK
     Route: 042
     Dates: start: 20220404, end: 20220419
  53. METOCLOPRAMIDE [Concomitant]
     Active Substance: METOCLOPRAMIDE
     Dosage: 10 MILLIGRAM
     Route: 042
     Dates: start: 20220404, end: 20220406
  54. PIPERACILLIN AND TAZOBACTAM [Concomitant]
     Active Substance: PIPERACILLIN SODIUM\TAZOBACTAM SODIUM
     Dosage: 4 GRAM
     Route: 042
     Dates: start: 20220330, end: 20220414
  55. RASBURICASE [Concomitant]
     Active Substance: RASBURICASE
     Dosage: 6 MILLIGRAM
     Route: 042
     Dates: start: 20220406, end: 20220409
  56. FUROSEMIDE [Concomitant]
     Active Substance: FUROSEMIDE
     Dosage: UNK
     Route: 042
     Dates: start: 20220330, end: 20220423
  57. DIAZEPAM [Concomitant]
     Active Substance: DIAZEPAM
     Dosage: UNK
     Route: 042
     Dates: start: 20220403, end: 20220423
  58. TRANEXAMIC ACID [Concomitant]
     Active Substance: TRANEXAMIC ACID
     Dosage: UNK
     Route: 042
     Dates: start: 20220404, end: 20220408
  59. SODIUM CHLORIDE [Concomitant]
     Active Substance: SODIUM CHLORIDE
     Dosage: 142 UNK-800 MILLILTER
     Route: 042
     Dates: start: 20220409, end: 20220422
  60. FAMOTIDINE [Concomitant]
     Active Substance: FAMOTIDINE
     Dosage: 20 MILLIGRAM
     Route: 047
     Dates: start: 20220408, end: 20220419
  61. INSULIN GLARGINE [Concomitant]
     Active Substance: INSULIN GLARGINE
     Dosage: 80 UNK
     Route: 058
     Dates: start: 20220409, end: 20220422
  62. METFORMIN [Concomitant]
     Active Substance: METFORMIN HYDROCHLORIDE
     Dosage: 500 MILLIGRAM
     Route: 048
     Dates: start: 20220330, end: 20220419
  63. MEROPENEM [Concomitant]
     Active Substance: MEROPENEM
     Dosage: 2 GRAM
     Route: 042
     Dates: start: 20220414, end: 20220424
  64. PENTAMIDINE [Concomitant]
     Active Substance: PENTAMIDINE
     Dosage: 300 MILLIGRAM
     Route: 042
     Dates: start: 20220419, end: 20220419
  65. PANTOPRAZOLE [Concomitant]
     Active Substance: PANTOPRAZOLE
     Dosage: 40 MILLIGRAM
     Route: 042
     Dates: start: 20220105, end: 20220423

REACTIONS (1)
  - Blood creatinine increased [Recovered/Resolved]

NARRATIVE: CASE EVENT DATE: 20220420
